FAERS Safety Report 22526784 (Version 1)
Quarter: 2023Q2

REPORT INFORMATION
  Report Type: Spontaneous
  Country: IT (occurrence: IT)
  Receive Date: 20230606
  Receipt Date: 20230606
  Transmission Date: 20230722
  Serious: Yes (Other)
  Sender: FDA-Public Use
  Company Number: IT-002147023-NVSC2023IT121119

PATIENT
  Age: 51 Year
  Sex: Female

DRUGS (8)
  1. TOFACITINIB [Suspect]
     Active Substance: TOFACITINIB
     Dosage: 10 MG, BID
     Route: 065
  2. TOFACITINIB [Suspect]
     Active Substance: TOFACITINIB
     Dosage: 5 MG, BID
     Route: 065
     Dates: start: 202212
  3. TOFACITINIB [Suspect]
     Active Substance: TOFACITINIB
     Dosage: 5 MG, QD
     Route: 065
     Dates: end: 202305
  4. SULFASALAZINE [Suspect]
     Active Substance: SULFASALAZINE
     Dosage: 3 G, QD
     Route: 065
  5. CYCLOSPORINE [Suspect]
     Active Substance: CYCLOSPORINE
     Dosage: UNK
     Route: 065
     Dates: start: 2007
  6. USTEKINUMAB [Suspect]
     Active Substance: USTEKINUMAB
     Dosage: UNK
     Route: 065
  7. USTEKINUMAB [Suspect]
     Active Substance: USTEKINUMAB
     Dosage: UNK
     Route: 065
     Dates: start: 202204
  8. VEDOLIZUMAB [Concomitant]
     Active Substance: VEDOLIZUMAB
     Dosage: UNK
     Route: 065
     Dates: start: 2017, end: 2019

REACTIONS (10)
  - Pericarditis [Unknown]
  - Haematochezia [Unknown]
  - Erythema nodosum [Unknown]
  - Arthropathy [Unknown]
  - Depressive symptom [Unknown]
  - Infusion site erythema [Not Recovered/Not Resolved]
  - Irritable bowel syndrome [Unknown]
  - Constipation [Recovered/Resolved]
  - Drug intolerance [Unknown]
  - Off label use [Unknown]
